FAERS Safety Report 24444120 (Version 2)
Quarter: 2024Q4

REPORT INFORMATION
  Report Type: Report from Study
  Country: CA (occurrence: CA)
  Receive Date: 20241016
  Receipt Date: 20241017
  Transmission Date: 20250115
  Serious: No
  Sender: ROCHE
  Company Number: CA-ROCHE-2645584

PATIENT
  Sex: Female

DRUGS (13)
  1. RITUXAN [Suspect]
     Active Substance: RITUXIMAB
     Indication: Polymyositis
     Dosage: ON DAY1,15
     Route: 042
     Dates: start: 20170601
  2. RITUXAN [Suspect]
     Active Substance: RITUXIMAB
     Indication: Interstitial lung disease
  3. AMLODIPINE [Concomitant]
     Active Substance: AMLODIPINE BESYLATE
  4. PROLIA [Concomitant]
     Active Substance: DENOSUMAB
  5. PREDNISONE [Concomitant]
     Active Substance: PREDNISONE
  6. RABEPRAZOLE SODIUM [Concomitant]
     Active Substance: RABEPRAZOLE SODIUM
  7. OXYCODONE [Concomitant]
     Active Substance: OXYCODONE
  8. METOPROLOL [Concomitant]
     Active Substance: METOPROLOL
  9. IMURAN [Concomitant]
     Active Substance: AZATHIOPRINE
  10. DAPSONE [Concomitant]
     Active Substance: DAPSONE
  11. CALCIUM [Concomitant]
     Active Substance: CALCIUM
  12. AZATHIOPRINE [Concomitant]
     Active Substance: AZATHIOPRINE
  13. APIXABAN [Concomitant]
     Active Substance: APIXABAN

REACTIONS (2)
  - Off label use [Unknown]
  - Fatigue [Unknown]
